FAERS Safety Report 9687487 (Version 4)
Quarter: 2013Q4

REPORT INFORMATION
  Report Type: Spontaneous
  Country: JP (occurrence: JP)
  Receive Date: 20131114
  Receipt Date: 20131213
  Transmission Date: 20140711
  Serious: Yes (Hospitalization, Disabling)
  Sender: FDA-Public Use
  Company Number: JP-BRISTOL-MYERS SQUIBB COMPANY-19378751

PATIENT
  Age: 93 Year
  Sex: Female
  Weight: 38.5 kg

DRUGS (7)
  1. ELIQUIS [Suspect]
     Route: 048
     Dates: start: 20130625, end: 20130807
  2. WARFARIN POTASSIUM [Suspect]
     Dates: end: 20121017
  3. DIART [Concomitant]
     Route: 048
     Dates: start: 20130716, end: 20130807
  4. HALCION [Concomitant]
     Route: 048
     Dates: start: 20130716, end: 20130807
  5. DOGMATYL [Concomitant]
     Route: 048
     Dates: start: 20130625
  6. MAINTATE [Concomitant]
     Route: 048
     Dates: start: 20130625
  7. MYSLEE [Concomitant]
     Route: 048
     Dates: start: 20130625

REACTIONS (2)
  - Lower gastrointestinal haemorrhage [Recovered/Resolved]
  - Renal failure chronic [Not Recovered/Not Resolved]
